FAERS Safety Report 7907368-X (Version None)
Quarter: 2011Q4

REPORT INFORMATION
  Report Type: 
  Country: None (occurrence: None)
  Receive Date: 20111110
  Receipt Date: 20111031
  Transmission Date: 20120403
  Serious: Yes (Death)
  Sender: FDA-Public Use
  Company Number: CN-MILLENNIUM PHARMACEUTICALS, INC.-2011-05261

PATIENT

DRUGS (2)
  1. DEXAMETHASONE [Suspect]
     Indication: MULTIPLE MYELOMA
     Dosage: UNK
  2. VELCADE [Suspect]
     Indication: MULTIPLE MYELOMA
     Dosage: UNK
     Route: 040

REACTIONS (3)
  - DEATH [None]
  - MULTIPLE MYELOMA [None]
  - NEOPLASM PROGRESSION [None]
